FAERS Safety Report 9787805 (Version 2)
Quarter: 2014Q1

REPORT INFORMATION
  Report Type: Spontaneous
  Country: US (occurrence: US)
  Receive Date: 20131230
  Receipt Date: 20140131
  Transmission Date: 20141002
  Serious: No
  Sender: FDA-Public Use
  Company Number: US-PFIZER INC-2013370130

PATIENT
  Age: 49 Year
  Sex: Female
  Weight: 70.75 kg

DRUGS (12)
  1. INLYTA [Suspect]
     Indication: METASTATIC RENAL CELL CARCINOMA
     Dosage: 5 MG, 2X/DAY (EVERY 12 HOURS)
     Route: 048
     Dates: start: 20131113, end: 20131227
  2. DALANTERCEPT [Suspect]
     Indication: METASTATIC RENAL CELL CARCINOMA
     Dosage: UNK
     Dates: start: 20131113, end: 20131227
  3. DELTASONE [Concomitant]
     Dosage: 50 MG, 3X/DAY (TAKE 1 TABLET 1, 7 AND 15 HOURS BEFORE CT SCAN)
     Route: 048
     Dates: start: 20131204
  4. BIOTIN [Concomitant]
     Dosage: 2500 UG, UNK
     Route: 048
  5. DEXLANSOPRAZOLE [Concomitant]
     Dosage: 60 MG, UNK
     Route: 048
  6. XANAX [Concomitant]
     Dosage: 0.25 MG, AS NEEDED
     Route: 048
     Dates: start: 20130821
  7. NORVASC [Concomitant]
     Dosage: 5 MG, 1X/DAY
     Route: 048
     Dates: start: 20130821
  8. DOMPERIDONE [Concomitant]
     Dosage: UNK
  9. FEMHRT [Concomitant]
     Dosage: UNK
     Route: 048
  10. COLACE [Concomitant]
     Dosage: AS NEEDED
     Route: 048
  11. ZYRTEC [Concomitant]
     Dosage: 10 MG, 1X/DAY
     Route: 048
  12. CALCIUM CARBONATE [Concomitant]
     Dosage: 600 MG, 1X/DAY
     Route: 048

REACTIONS (10)
  - Disease progression [Unknown]
  - Metastatic renal cell carcinoma [Unknown]
  - Constipation [Recovered/Resolved]
  - Abdominal pain [Recovered/Resolved]
  - Abdominal pain upper [Recovered/Resolved]
  - Diarrhoea [Unknown]
  - Epistaxis [Unknown]
  - Nasal dryness [Unknown]
  - Blood alkaline phosphatase increased [Unknown]
  - Gamma-glutamyltransferase increased [Unknown]
